FAERS Safety Report 11405138 (Version 1)
Quarter: 2015Q3

REPORT INFORMATION
  Report Type: Spontaneous
  Country: US (occurrence: US)
  Receive Date: 20150821
  Receipt Date: 20150821
  Transmission Date: 20151125
  Serious: No
  Sender: FDA-Public Use
  Company Number: US-NOVOPROD-426167

PATIENT
  Sex: Female

DRUGS (1)
  1. VICTOZA [Suspect]
     Active Substance: LIRAGLUTIDE
     Indication: PRODUCT USED FOR UNKNOWN INDICATION
     Dosage: 0.6 MG QD
     Route: 058
     Dates: start: 2012, end: 201404

REACTIONS (5)
  - Urticaria [Unknown]
  - Acne [Recovered/Resolved]
  - Peripheral swelling [Unknown]
  - Injection site pain [Unknown]
  - Scab [Recovered/Resolved]
